FAERS Safety Report 7958276-X (Version None)
Quarter: 2011Q4

REPORT INFORMATION
  Report Type: 
  Country: None (occurrence: None)
  Receive Date: 20111205
  Receipt Date: 20050407
  Transmission Date: 20120403
  Serious: Yes (Other)
  Sender: FDA-Public Use
  Company Number: PHHY2005US007037

PATIENT
  Sex: Male

DRUGS (1)
  1. LOPRESSOR [Suspect]

REACTIONS (2)
  - CONFUSIONAL STATE [None]
  - CONVULSION [None]
